FAERS Safety Report 4282997-6 (Version None)
Quarter: 2004Q1

REPORT INFORMATION
  Report Type: 
  Country: None (occurrence: None)
  Receive Date: 20040130
  Receipt Date: 20020516
  Transmission Date: 20041129
  Serious: Yes (Hospitalization)
  Sender: FDA-Public Use
  Company Number: WAES 0205USA02092

PATIENT
  Age: 55 Year
  Sex: Female
  Weight: 77 kg

DRUGS (6)
  1. SOMA [Concomitant]
  2. MOTRIN [Concomitant]
  3. VIOXX [Suspect]
     Indication: PAIN
     Route: 048
     Dates: end: 20001001
  4. VIOXX [Suspect]
     Route: 048
     Dates: start: 20001025
  5. VIOXX [Suspect]
     Route: 048
     Dates: start: 20010101, end: 20010710
  6. LAMISIL [Concomitant]
     Indication: ONYCHOMYCOSIS

REACTIONS (21)
  - ARTHRALGIA [None]
  - ARTHRITIS [None]
  - ASTHENIA [None]
  - BALANCE DISORDER [None]
  - BLOOD CHLORIDE INCREASED [None]
  - BLOOD CHOLESTEROL INCREASED [None]
  - CAROTID ARTERY STENOSIS [None]
  - CEREBROVASCULAR ACCIDENT [None]
  - CHONDROMALACIA [None]
  - COUGH [None]
  - DIZZINESS [None]
  - DYSARTHRIA [None]
  - FALL [None]
  - HEMIPARESIS [None]
  - HYPERTENSION [None]
  - MASTOIDITIS [None]
  - MUSCLE STRAIN [None]
  - NAUSEA [None]
  - OEDEMA PERIPHERAL [None]
  - PARAESTHESIA [None]
  - VISUAL ACUITY REDUCED [None]
